FAERS Safety Report 6097347-2 (Version None)
Quarter: 2009Q1

REPORT INFORMATION
  Report Type: 
  Country: None (occurrence: None)
  Receive Date: 20090226
  Receipt Date: 20090226
  Transmission Date: 20090719
  Serious: Yes (Disabling)
  Sender: FDA-Public Use
  Company Number: None

PATIENT
  Age: 53 Year
  Sex: Female
  Weight: 47.6277 kg

DRUGS (1)
  1. ZOLPIDEM [Suspect]
     Indication: INSOMNIA
     Dosage: ONE AT NIGHT PRN PO
     Route: 048

REACTIONS (4)
  - ABNORMAL SLEEP-RELATED EVENT [None]
  - AGITATION [None]
  - INCOHERENT [None]
  - SOMNAMBULISM [None]
